FAERS Safety Report 25256775 (Version 1)
Quarter: 2025Q2

REPORT INFORMATION
  Report Type: Spontaneous
  Country: US (occurrence: US)
  Receive Date: 20250430
  Receipt Date: 20250430
  Transmission Date: 20250716
  Serious: Yes (Hospitalization, Other)
  Sender: RECKITT BENCKISER
  Company Number: US-INDIVIOR US-INDV-161150-2025

PATIENT
  Age: 52 Year
  Sex: Male

DRUGS (1)
  1. BUPRENORPHINE\NALOXONE [Suspect]
     Active Substance: BUPRENORPHINE\NALOXONE
     Indication: Drug use disorder
     Route: 065

REACTIONS (5)
  - Oesophageal cancer metastatic [Unknown]
  - Overdose [Recovered/Resolved]
  - Psychiatric symptom [Unknown]
  - Inappropriate schedule of product discontinuation [Recovered/Resolved]
  - Drug abuse [Recovered/Resolved]
